FAERS Safety Report 4867421-4 (Version None)
Quarter: 2005Q4

REPORT INFORMATION
  Report Type: 
  Country: None (occurrence: None)
  Receive Date: 20051222
  Receipt Date: 20051214
  Transmission Date: 20060501
  Serious: Yes (Hospitalization, Other)
  Sender: FDA-Public Use
  Company Number: 2005093147

PATIENT
  Age: 73 Year
  Sex: Female
  Weight: 79.8331 kg

DRUGS (8)
  1. LIPITOR [Suspect]
     Indication: BLOOD CHOLESTEROL INCREASED
     Dosage: (40 MG)
  2. CELEBREX [Suspect]
     Indication: OSTEOARTHRITIS
     Dosage: (1 IN 1 D)
  3. DETROL LA [Suspect]
     Indication: INCONTINENCE
  4. ALL OTHER THERAPEUTIC PRODUCTS (ALL OTHER THERAPEUTIC PRODUCTS) [Suspect]
     Indication: INCONTINENCE
     Dosage: (1 IN 4 D), TRANSDERMAL
     Route: 062
  5. BEXTRA [Suspect]
     Indication: OSTEOARTHRITIS
     Dosage: (1 IN 1 D)
  6. ZETIA [Concomitant]
  7. GABAPENTIN [Concomitant]
  8. ALL OTHER THERAPEUTIC PRODUCTS (ALL OTHER THERAPEUTIC PRODUCTS) [Concomitant]

REACTIONS (8)
  - APPLICATION SITE DERMATITIS [None]
  - ASTHENIA [None]
  - DIARRHOEA [None]
  - DYSPEPSIA [None]
  - INCONTINENCE [None]
  - NO THERAPEUTIC RESPONSE [None]
  - OSTEOARTHRITIS [None]
  - WALKING AID USER [None]
